FAERS Safety Report 17511063 (Version 4)
Quarter: 2023Q4

REPORT INFORMATION
  Report Type: Spontaneous
  Country: US (occurrence: US)
  Receive Date: 20200306
  Receipt Date: 20231002
  Transmission Date: 20240110
  Serious: No
  Sender: FDA-Public Use
  Company Number: US-HARMONY BIOSCIENCES-2020HMY00013

PATIENT
  Age: 53 Year
  Sex: Female
  Weight: 71.882 kg

DRUGS (7)
  1. WAKIX [Suspect]
     Active Substance: PITOLISANT HYDROCHLORIDE
     Indication: Narcolepsy
     Dosage: 8.9 MG, 1X/DAY
     Route: 048
     Dates: start: 201912, end: 201912
  2. WAKIX [Suspect]
     Active Substance: PITOLISANT HYDROCHLORIDE
     Indication: Cataplexy
     Dosage: 17.8 MG, 1X/DAY
     Route: 048
     Dates: start: 201912
  3. WAKIX [Suspect]
     Active Substance: PITOLISANT HYDROCHLORIDE
     Dosage: 35.6 MG, 1X/DAY
     Route: 048
  4. WAKIX [Suspect]
     Active Substance: PITOLISANT HYDROCHLORIDE
     Dosage: 17.8 MG, 2X/DAY (1 IN AM AND 1 AT NOON)
  5. WAKIX [Suspect]
     Active Substance: PITOLISANT HYDROCHLORIDE
     Dosage: UNK
     Dates: start: 20210702
  6. WAKIX [Suspect]
     Active Substance: PITOLISANT HYDROCHLORIDE
     Dosage: UNK
  7. WAKIX [Suspect]
     Active Substance: PITOLISANT HYDROCHLORIDE
     Dosage: UNK ^SPLIT DOSING^

REACTIONS (18)
  - Paranoia [Not Recovered/Not Resolved]
  - Amnesia [Recovering/Resolving]
  - Disorganised speech [Unknown]
  - Thinking abnormal [Unknown]
  - Panic reaction [Unknown]
  - Sleep terror [Unknown]
  - Cystitis [Unknown]
  - Malaise [Not Recovered/Not Resolved]
  - Drug interaction [Unknown]
  - Inappropriate schedule of product administration [Unknown]
  - Fatigue [Unknown]
  - Anxiety [Not Recovered/Not Resolved]
  - Hallucination [Unknown]
  - Abnormal behaviour [Not Recovered/Not Resolved]
  - Nightmare [Unknown]
  - Insomnia [Recovered/Resolved]
  - Drug ineffective [Not Recovered/Not Resolved]
  - Initial insomnia [Unknown]

NARRATIVE: CASE EVENT DATE: 20200101
